FAERS Safety Report 21380378 (Version 2)
Quarter: 2023Q1

REPORT INFORMATION
  Report Type: Report from Study
  Country: BR (occurrence: BR)
  Receive Date: 20220927
  Receipt Date: 20230320
  Transmission Date: 20230417
  Serious: Yes (Other)
  Sender: FDA-Public Use
  Company Number: BR-JNJFOC-20220943330

PATIENT
  Age: 46 Year
  Sex: Male

DRUGS (3)
  1. SIMPONI [Suspect]
     Active Substance: GOLIMUMAB
     Indication: Ankylosing spondylitis
     Route: 058
     Dates: start: 20200917
  2. SIMPONI [Suspect]
     Active Substance: GOLIMUMAB
  3. AZULFIDINE [Concomitant]
     Active Substance: SULFASALAZINE
     Indication: Ankylosing spondylitis

REACTIONS (2)
  - Haemorrhage [Recovered/Resolved]
  - Joint swelling [Recovered/Resolved]

NARRATIVE: CASE EVENT DATE: 20220101
